FAERS Safety Report 12905195 (Version 1)
Quarter: 2016Q4

REPORT INFORMATION
  Report Type: Spontaneous
  Country: CN (occurrence: CN)
  Receive Date: 20161102
  Receipt Date: 20161102
  Transmission Date: 20170207
  Serious: Yes (Other)
  Sender: FDA-Public Use
  Company Number: CN-BAXTER-2016BAX055180

PATIENT
  Age: 1 Year
  Sex: Male
  Weight: 12 kg

DRUGS (5)
  1. 0.9% SODIUM CHLORIDE INJECTION [Suspect]
     Active Substance: SODIUM CHLORIDE
     Indication: CHILLS
     Route: 041
  2. CIMETIDINE [Suspect]
     Active Substance: CIMETIDINE
     Indication: PROPHYLAXIS
     Route: 041
     Dates: start: 20160705, end: 20160705
  3. 5% GLUCOSE  INJECTION [Suspect]
     Active Substance: DEXTROSE
     Indication: FLUID REPLACEMENT
     Route: 041
     Dates: start: 20160705, end: 20160705
  4. 5% GLUCOSE  INJECTION [Suspect]
     Active Substance: DEXTROSE
     Indication: MEDICATION DILUTION
  5. DEXAMETHASONE. [Suspect]
     Active Substance: DEXAMETHASONE
     Indication: CHILLS
     Route: 040
     Dates: start: 20160705

REACTIONS (2)
  - Chills [Recovered/Resolved]
  - Vomiting [Recovering/Resolving]

NARRATIVE: CASE EVENT DATE: 20160705
